FAERS Safety Report 25721125 (Version 1)
Quarter: 2025Q3

REPORT INFORMATION
  Report Type: Spontaneous
  Country: US (occurrence: US)
  Receive Date: 20250825
  Receipt Date: 20250825
  Transmission Date: 20251021
  Serious: No
  Sender: ELI LILLY AND COMPANY
  Company Number: US-ELI_LILLY_AND_COMPANY-US202508010808

PATIENT
  Age: 40 Year
  Sex: Male

DRUGS (1)
  1. ZEPBOUND [Suspect]
     Active Substance: TIRZEPATIDE
     Indication: Weight control
     Route: 065
     Dates: start: 20250815

REACTIONS (5)
  - Drug ineffective [Unknown]
  - Weight increased [Unknown]
  - Food craving [Unknown]
  - Increased appetite [Unknown]
  - Lack of satiety [Unknown]

NARRATIVE: CASE EVENT DATE: 20250815
